FAERS Safety Report 8429199-7 (Version None)
Quarter: 2012Q2

REPORT INFORMATION
  Report Type: 
  Country: None (occurrence: None)
  Receive Date: 20120612
  Receipt Date: 20120604
  Transmission Date: 20120825
  Serious: Yes (Hospitalization)
  Sender: FDA-Public Use
  Company Number: US-BAYER-2012-018556

PATIENT
  Age: 33 Year
  Sex: Female
  Weight: 79.048 kg

DRUGS (4)
  1. PRILOSEC [Concomitant]
  2. YASMIN [Suspect]
     Dosage: UNK
     Dates: start: 20100201, end: 20100601
  3. YAZ [Suspect]
     Dosage: UNK
     Dates: start: 20100301
  4. RECLIPSEN [Concomitant]
     Dosage: UNK
     Dates: start: 20100201, end: 20100301

REACTIONS (5)
  - PAIN [None]
  - INJURY [None]
  - EMOTIONAL DISTRESS [None]
  - DEEP VEIN THROMBOSIS [None]
  - PULMONARY EMBOLISM [None]
